FAERS Safety Report 8180805-4 (Version None)
Quarter: 2012Q1

REPORT INFORMATION
  Report Type: 
  Country: None (occurrence: None)
  Receive Date: 20120301
  Receipt Date: 20120301
  Transmission Date: 20120608
  Serious: Yes (Other)
  Sender: FDA-Public Use
  Company Number: None

PATIENT
  Sex: Female
  Weight: 47.7 kg

DRUGS (1)
  1. PRILOSEC [Suspect]
     Indication: GASTROOESOPHAGEAL REFLUX DISEASE
     Dosage: 1 TABLET DAILY PO
     Route: 048
     Dates: start: 20111101, end: 20120204

REACTIONS (3)
  - PUBIS FRACTURE [None]
  - ABDOMINAL PAIN [None]
  - DIARRHOEA [None]
